FAERS Safety Report 8807178 (Version 1)
Quarter: 2012Q4

REPORT INFORMATION
  Report Type: 
  Country: US (occurrence: US)
  Receive Date: 20120925
  Receipt Date: 20120925
  Transmission Date: 20130627
  Serious: No
  Sender: FDA-Public Use
  Company Number: US-ASTRAZENECA-2012SE70822

PATIENT
  Age: 59 Year
  Sex: Female

DRUGS (1)
  1. PRILOSEC [Suspect]
     Route: 048

REACTIONS (4)
  - Disease recurrence [Unknown]
  - Burning sensation [Unknown]
  - Drug effect incomplete [Unknown]
  - Gastrooesophageal reflux disease [Unknown]
